FAERS Safety Report 5789002-0 (Version None)
Quarter: 2008Q2

REPORT INFORMATION
  Report Type: 
  Country: None (occurrence: None)
  Receive Date: 20080626
  Receipt Date: 20080102
  Transmission Date: 20081010
  Serious: No
  Sender: FDA-Public Use
  Company Number: US-ASTRAZENECA-2008UW00050

PATIENT
  Age: 18 Month
  Sex: Male
  Weight: 8.2 kg

DRUGS (7)
  1. PULMICORT RESPULES [Suspect]
     Indication: LUNG DISORDER
     Route: 055
     Dates: start: 20060501
  2. XOPENEX [Suspect]
     Indication: LUNG DISORDER
     Dosage: 0.63MG/ML
     Dates: start: 20060501, end: 20070601
  3. XOPENEX [Suspect]
     Dosage: 0.63MG/ML
     Dates: start: 20070601
  4. ALDACTAZIDE [Concomitant]
  5. REGLAN [Concomitant]
  6. ATROVENT [Concomitant]
  7. OXYGEN [Concomitant]

REACTIONS (3)
  - ECZEMA [None]
  - RASH [None]
  - VISUAL DISTURBANCE [None]
